FAERS Safety Report 8993019 (Version 2)
Quarter: 2013Q1

REPORT INFORMATION
  Report Type: Spontaneous
  Country: IT (occurrence: IT)
  Receive Date: 20130102
  Receipt Date: 20130131
  Transmission Date: 20140127
  Serious: Yes (Hospitalization)
  Sender: FDA-Public Use
  Company Number: IT-JNJFOC-20121210477

PATIENT
  Age: 86 Year
  Sex: Female

DRUGS (6)
  1. SERENASE [Suspect]
     Indication: PSYCHOMOTOR HYPERACTIVITY
     Route: 048
     Dates: start: 20121124, end: 20121206
  2. TALOFEN [Suspect]
     Indication: PSYCHOMOTOR HYPERACTIVITY
     Dosage: 10 DROPS DAILY (4 GRAM/100 ML)
     Route: 048
  3. ENAPREN [Concomitant]
     Dosage: 28 TABLETS
     Route: 065
  4. ADESITRIN [Concomitant]
     Dosage: 15 TRANSDERMAL PATCH
     Route: 065
  5. CARDIOASPIRIN [Concomitant]
     Route: 065
  6. LASIX [Concomitant]
     Dosage: 30 TABLETS
     Route: 065

REACTIONS (2)
  - Myocardial ischaemia [Recovered/Resolved]
  - Angina pectoris [Recovered/Resolved]
